FAERS Safety Report 24400177 (Version 1)
Quarter: 2024Q4

REPORT INFORMATION
  Report Type: Spontaneous
  Country: US (occurrence: US)
  Receive Date: 20241005
  Receipt Date: 20241005
  Transmission Date: 20250115
  Serious: No
  Sender: BIONPHARMA
  Company Number: US-Bion-013983

PATIENT
  Sex: Male

DRUGS (1)
  1. IBUPROFEN [Suspect]
     Active Substance: IBUPROFEN
     Indication: Product used for unknown indication
     Dates: start: 20240922

REACTIONS (4)
  - Wrong product administered [Unknown]
  - Lethargy [Unknown]
  - Dizziness [Unknown]
  - Nausea [Unknown]
